FAERS Safety Report 24064499 (Version 1)
Quarter: 2024Q3

REPORT INFORMATION
  Report Type: Spontaneous
  Country: IT (occurrence: IT)
  Receive Date: 20240709
  Receipt Date: 20240709
  Transmission Date: 20241016
  Serious: Yes (Other)
  Sender: MYLAN
  Company Number: None

PATIENT
  Age: 44 Year
  Weight: 74 kg

DRUGS (1)
  1. PACLITAXEL [Suspect]
     Active Substance: PACLITAXEL
     Indication: Invasive ductal breast carcinoma
     Dosage: QW (140MG-150MG; 1 TIME A WEEK (ACCORDING TO THERAPEUTIC SCHEME)
     Route: 042
     Dates: start: 20230807, end: 20231030

REACTIONS (3)
  - Hyperpyrexia [Recovering/Resolving]
  - Myelosuppression [Recovering/Resolving]
  - Pruritus [Recovering/Resolving]

NARRATIVE: CASE EVENT DATE: 20230918
